FAERS Safety Report 19443608 (Version 1)
Quarter: 2021Q2

REPORT INFORMATION
  Report Type: Spontaneous
  Country: US (occurrence: US)
  Receive Date: 20210621
  Receipt Date: 20210621
  Transmission Date: 20210717
  Serious: Yes (Other)
  Sender: FDA-Public Use
  Company Number: US-GW PHARMA-202106USGW02968

PATIENT

DRUGS (3)
  1. EPIDIOLEX [Suspect]
     Active Substance: CANNABIDIOL
     Indication: SEIZURE
     Dosage: UNK  (FIRST SHIP DATE WAS 03?MAR?2021)
     Route: 048
     Dates: start: 202103, end: 2021
  2. EPIDIOLEX [Suspect]
     Active Substance: CANNABIDIOL
     Dosage: 24.14 MG/KG/DAY, 600 MILLIGRAM, BID
     Route: 048
     Dates: start: 2021, end: 202106
  3. EPIDIOLEX [Suspect]
     Active Substance: CANNABIDIOL
     Dosage: 28.16 MG/KG/DAY, 700 MILLIGRAM, BID
     Route: 048
     Dates: start: 202106

REACTIONS (3)
  - Weight abnormal [Unknown]
  - Prescribed overdose [Unknown]
  - Seizure [Unknown]

NARRATIVE: CASE EVENT DATE: 2021
